FAERS Safety Report 10622284 (Version 1)
Quarter: 2014Q4

REPORT INFORMATION
  Report Type: Spontaneous
  Country: US (occurrence: None)
  Receive Date: 20141201
  Receipt Date: 20141201
  Transmission Date: 20150529
  Serious: Yes (Hospitalization)
  Sender: FDA-Public Use
  Company Number: None

PATIENT
  Age: 46 Year
  Sex: Male
  Weight: 115.5 kg

DRUGS (1)
  1. SPIRONOLACTONE. [Suspect]
     Active Substance: SPIRONOLACTONE
     Indication: HYPERKALAEMIA
     Route: 048
     Dates: start: 20140203, end: 20140511

REACTIONS (6)
  - Hyperkalaemia [None]
  - Angina pectoris [None]
  - Blood urea increased [None]
  - Blood creatinine increased [None]
  - Chest pain [None]
  - Dialysis [None]

NARRATIVE: CASE EVENT DATE: 20140511
